FAERS Safety Report 8249501-9 (Version None)
Quarter: 2012Q1

REPORT INFORMATION
  Report Type: 
  Country: None (occurrence: None)
  Receive Date: 20120316
  Receipt Date: 20101022
  Transmission Date: 20120608
  Serious: Yes (Life-Threatening)
  Sender: FDA-Public Use
  Company Number: PHHY2010US71350

PATIENT

DRUGS (2)
  1. AVAPRO [Concomitant]
  2. TEKTURNA [Suspect]
     Indication: HYPERTENSION

REACTIONS (1)
  - HYPERKALAEMIA [None]
